FAERS Safety Report 18650353 (Version 1)
Quarter: 2020Q4

REPORT INFORMATION
  Report Type: Spontaneous
  Country: DE (occurrence: DE)
  Receive Date: 20201222
  Receipt Date: 20201222
  Transmission Date: 20210114
  Serious: Yes (Other)
  Sender: FDA-Public Use
  Company Number: DE-AMNEAL PHARMACEUTICALS-2020-AMRX-03962

PATIENT
  Sex: Female

DRUGS (2)
  1. ALBENZA [Suspect]
     Active Substance: ALBENDAZOLE
     Indication: STRONGYLOIDIASIS
     Dosage: UNK
     Route: 065
     Dates: start: 2013
  2. ALBENZA [Suspect]
     Active Substance: ALBENDAZOLE
     Indication: ECHINOCOCCIASIS
     Dosage: UNK
     Route: 065

REACTIONS (9)
  - Peripheral swelling [Recovering/Resolving]
  - Treatment noncompliance [Unknown]
  - Abdominal pain [Unknown]
  - Prescription drug used without a prescription [Unknown]
  - Chromaturia [Unknown]
  - Schistosomiasis [Unknown]
  - Dyspnoea [Unknown]
  - Alopecia [Unknown]
  - Haematuria [Unknown]
